FAERS Safety Report 6823062-0 (Version None)
Quarter: 2010Q3

REPORT INFORMATION
  Report Type: 
  Country: None (occurrence: None)
  Receive Date: 20100708
  Receipt Date: 20100630
  Transmission Date: 20110219
  Serious: Yes (Hospitalization, Other)
  Sender: FDA-Public Use
  Company Number: B0664351A

PATIENT
  Age: 37 Year
  Sex: Male

DRUGS (1)
  1. HEPTODIN [Suspect]
     Dosage: .1G PER DAY
     Route: 048
     Dates: start: 20100520, end: 20100615

REACTIONS (3)
  - HERPES VIRUS INFECTION [None]
  - HYPOAESTHESIA ORAL [None]
  - PYREXIA [None]
